FAERS Safety Report 11932367 (Version 1)
Quarter: 2016Q1

REPORT INFORMATION
  Report Type: Spontaneous
  Country: US (occurrence: US)
  Receive Date: 20160120
  Receipt Date: 20160120
  Transmission Date: 20160526
  Serious: Yes (Other)
  Sender: FDA-Public Use
  Company Number: US-TEVA-625575USA

PATIENT
  Age: 72 Year
  Sex: Female

DRUGS (1)
  1. PROAIR HFA [Suspect]
     Active Substance: ALBUTEROL SULFATE
     Route: 055

REACTIONS (4)
  - Dyspnoea [Unknown]
  - Pneumonia [Unknown]
  - Feeling abnormal [Unknown]
  - Expired product administered [Unknown]

NARRATIVE: CASE EVENT DATE: 201512
